FAERS Safety Report 5351042-3 (Version None)
Quarter: 2007Q2

REPORT INFORMATION
  Report Type: 
  Country: None (occurrence: None)
  Receive Date: 20070608
  Receipt Date: 20070531
  Transmission Date: 20071010
  Serious: Yes (Hospitalization)
  Sender: FDA-Public Use
  Company Number: HQWYE444531MAY07

PATIENT
  Sex: Male

DRUGS (8)
  1. CORDARONE [Suspect]
     Indication: VENTRICULAR TACHYCARDIA
     Route: 048
     Dates: start: 20070330, end: 20070404
  2. CORDARONE [Suspect]
     Route: 048
     Dates: start: 20070405, end: 20070409
  3. FURESIS [Concomitant]
     Indication: ISCHAEMIC CARDIOMYOPATHY
     Route: 048
  4. PARA-TABS [Concomitant]
     Dosage: UNKNOWN
     Route: 048
  5. RAMIPRIL [Concomitant]
     Indication: ISCHAEMIC CARDIOMYOPATHY
     Route: 048
  6. LESCOL [Concomitant]
     Indication: HYPERCHOLESTEROLAEMIA
     Route: 048
  7. MAREVAN [Concomitant]
     Dosage: UNKNOWN
     Route: 065
  8. CARDIOL [Concomitant]
     Indication: ISCHAEMIC CARDIOMYOPATHY

REACTIONS (2)
  - LUNG DISORDER [None]
  - PULMONARY ALVEOLAR HAEMORRHAGE [None]
